FAERS Safety Report 9158486 (Version 1)
Quarter: 2013Q1

REPORT INFORMATION
  Report Type: Report from Study
  Country: GB (occurrence: GB)
  Receive Date: 20130312
  Receipt Date: 20130312
  Transmission Date: 20140127
  Serious: Yes (Hospitalization, Other)
  Sender: FDA-Public Use
  Company Number: GB-JNJFOC-20130302803

PATIENT
  Age: 50 Year
  Sex: Male
  Weight: 104 kg

DRUGS (5)
  1. USTEKINUMAB [Suspect]
     Indication: PSORIASIS
     Route: 058
     Dates: start: 20100210
  2. PIOGLITAZONE [Concomitant]
     Dates: start: 20110215
  3. MESALAZINE [Concomitant]
     Dates: start: 20120615
  4. ASPIRIN [Concomitant]
     Dates: start: 20121001
  5. LANSOPRAZOLE [Concomitant]
     Dates: start: 20121001

REACTIONS (1)
  - Transient ischaemic attack [Unknown]
